FAERS Safety Report 15455875 (Version 1)
Quarter: 2018Q4

REPORT INFORMATION
  Report Type: Spontaneous
  Country: BR (occurrence: BR)
  Receive Date: 20181002
  Receipt Date: 20181002
  Transmission Date: 20190204
  Serious: Yes (Other)
  Sender: FDA-Public Use
  Company Number: BR-SA-2018SA243161

PATIENT
  Sex: Female
  Weight: 56 kg

DRUGS (2)
  1. CLEXANE [Suspect]
     Active Substance: ENOXAPARIN SODIUM
     Indication: PULMONARY EMBOLISM
     Dosage: UNK, QD, ONE DAILY APPLICATION
     Route: 058
     Dates: start: 20180827
  2. FOLIC ACID. [Concomitant]
     Active Substance: FOLIC ACID
     Indication: PRODUCT USED FOR UNKNOWN INDICATION
     Dosage: 400 MG, ABOUT ONE YEAR STARTED
     Route: 048
     Dates: start: 2017

REACTIONS (3)
  - Ectopic pregnancy [Unknown]
  - Surgery [Unknown]
  - Exposure during pregnancy [Unknown]
